FAERS Safety Report 7570936-1 (Version None)
Quarter: 2011Q2

REPORT INFORMATION
  Report Type: 
  Country: None (occurrence: None)
  Receive Date: 20110620
  Receipt Date: 20110613
  Transmission Date: 20111010
  Serious: Yes (Hospitalization)
  Sender: FDA-Public Use
  Company Number: 2011-UK-0090

PATIENT
  Age: 70 Year
  Sex: Male

DRUGS (6)
  1. OXYCONTIN [Suspect]
     Indication: PAIN
     Dosage: 20 MG X 1, 2 TIMES PER DAY ORAL
     Route: 048
  2. NALOXONE [Suspect]
     Indication: TOXICITY TO VARIOUS AGENTS
     Dosage: 400-600MCG INTRAVENOUS
     Route: 042
     Dates: start: 20110315, end: 20110315
  3. CODEINE PHOSPHATE (CODEINE) ;FORMULATION UNKNOWN [Suspect]
     Indication: DIARRHOEA
     Dosage: 60 MG X 1, 4 TIMES PER DAY ORAL
     Route: 048
     Dates: start: 20110410, end: 20110415
  4. FENTANYL [Suspect]
     Indication: BREAKTHROUGH PAIN
     Dosage: 100MG-200MG QDS PRN SUBLINGUAL
     Route: 060
  5. HALOPERIDOL [Concomitant]
  6. OXYCODONE HYDROCHLORIDE [Suspect]
     Indication: PAIN
     Dosage: AS NECESSARY ORAL
     Route: 048

REACTIONS (7)
  - RESPIRATORY DISTRESS [None]
  - MIOSIS [None]
  - PARAESTHESIA [None]
  - HYPOAESTHESIA [None]
  - WITHDRAWAL SYNDROME [None]
  - MUSCLE TWITCHING [None]
  - OXYGEN SATURATION DECREASED [None]
